FAERS Safety Report 17645998 (Version 1)
Quarter: 2020Q2

REPORT INFORMATION
  Report Type: Spontaneous
  Country: US (occurrence: US)
  Receive Date: 20200408
  Receipt Date: 20200408
  Transmission Date: 20200713
  Serious: No
  Sender: FDA-Public Use
  Company Number: US-SA-2020SA084119

PATIENT
  Sex: Female

DRUGS (1)
  1. DUPIXENT [Suspect]
     Active Substance: DUPILUMAB
     Indication: ECZEMA
     Dosage: UNK
     Dates: start: 201902, end: 202002

REACTIONS (9)
  - Hordeolum [Unknown]
  - Eye allergy [Unknown]
  - Immune system disorder [Unknown]
  - Pruritus [Unknown]
  - Seasonal allergy [Unknown]
  - Allergic sinusitis [Unknown]
  - Sinus disorder [Unknown]
  - Eczema [Unknown]
  - Drug ineffective [Unknown]
